FAERS Safety Report 13817754 (Version 2)
Quarter: 2017Q3

REPORT INFORMATION
  Report Type: Spontaneous
  Country: US (occurrence: US)
  Receive Date: 20170731
  Receipt Date: 20170802
  Transmission Date: 20171127
  Serious: Yes (Other)
  Sender: FDA-Public Use
  Company Number: US-CELGENEUS-USA-20170707253

PATIENT
  Sex: Female

DRUGS (1)
  1. OTEZLA [Suspect]
     Active Substance: APREMILAST
     Indication: PSORIASIS
     Dosage: 30 MILLIGRAM
     Route: 048
     Dates: start: 2015

REACTIONS (6)
  - Skin cancer [Unknown]
  - Blood glucose increased [Unknown]
  - Pancreatitis [Unknown]
  - Drug ineffective [Unknown]
  - Psoriasis [Unknown]
  - Nephrolithiasis [Unknown]
